FAERS Safety Report 12811199 (Version 1)
Quarter: 2016Q4

REPORT INFORMATION
  Report Type: Spontaneous
  Country: US (occurrence: US)
  Receive Date: 20161005
  Receipt Date: 20161005
  Transmission Date: 20170207
  Serious: No
  Sender: FDA-Public Use
  Company Number: US-HORIZON-ACT-0231-2016

PATIENT
  Age: 45 Year
  Sex: Female

DRUGS (1)
  1. ACTIMMUNE [Suspect]
     Active Substance: INTERFERON GAMMA-1B
     Indication: SMEAR CERVIX ABNORMAL
     Dosage: 40 ?G TIW
     Dates: start: 20150123

REACTIONS (2)
  - Off label use [Unknown]
  - Influenza [Unknown]
